FAERS Safety Report 7258607-2 (Version None)
Quarter: 2011Q1

REPORT INFORMATION
  Report Type: 
  Country: None (occurrence: None)
  Receive Date: 20110129
  Receipt Date: 20100502
  Transmission Date: 20110831
  Serious: No
  Sender: FDA-Public Use
  Company Number: US-ABBOTT-09P-163-0563333-00

PATIENT
  Sex: Male
  Weight: 86.26 kg

DRUGS (5)
  1. HUMIRA [Suspect]
     Indication: CROHN'S DISEASE
     Route: 058
     Dates: start: 20080801
  2. FENESTEROID [Concomitant]
     Indication: ALOPECIA
  3. CIPRO [Concomitant]
     Indication: CROHN'S DISEASE
  4. KLONOPIN [Concomitant]
     Indication: PRODUCT USED FOR UNKNOWN INDICATION
     Dosage: AS REQUIRED
  5. PERCOCET [Concomitant]
     Indication: PRODUCT USED FOR UNKNOWN INDICATION
     Dosage: AS REQUIRED

REACTIONS (6)
  - OROPHARYNGEAL PAIN [None]
  - THROAT TIGHTNESS [None]
  - VOMITING [None]
  - PYREXIA [None]
  - DYSPNOEA [None]
  - DYSPHAGIA [None]
